FAERS Safety Report 25823773 (Version 1)
Quarter: 2025Q3

REPORT INFORMATION
  Report Type: Spontaneous
  Country: US (occurrence: None)
  Receive Date: 20250918
  Receipt Date: 20250918
  Transmission Date: 20251021
  Serious: Yes (Hospitalization, Other)
  Sender: FDA-CTU
  Company Number: None

PATIENT
  Sex: Female

DRUGS (2)
  1. LEQVIO [Suspect]
     Active Substance: INCLISIRAN SODIUM
     Indication: Blood cholesterol
     Route: 030
     Dates: start: 20250916
  2. GEMTESA [Suspect]
     Active Substance: VIBEGRON
     Dosage: OTHER QUANTITY : 1 TABLET(S);?FREQUENCY : DAILY;?
     Route: 048

REACTIONS (11)
  - Muscle spasms [None]
  - Pain in extremity [None]
  - Pain in extremity [None]
  - Middle insomnia [None]
  - Chest discomfort [None]
  - Nasal discomfort [None]
  - Wheezing [None]
  - Rhinorrhoea [None]
  - Chronic obstructive pulmonary disease [None]
  - Asphyxia [None]
  - Chest discomfort [None]

NARRATIVE: CASE EVENT DATE: 20250916
